FAERS Safety Report 9054106 (Version 1)
Quarter: 2013Q1

REPORT INFORMATION
  Report Type: Spontaneous
  Country: FR (occurrence: FR)
  Receive Date: 20130208
  Receipt Date: 20130208
  Transmission Date: 20140127
  Serious: Yes (Hospitalization, Other)
  Sender: FDA-Public Use
  Company Number: FR-PFIZER INC-2013051277

PATIENT
  Age: 84 Year
  Sex: Male

DRUGS (13)
  1. CORDARONE [Suspect]
     Dosage: UNK
     Route: 048
  2. ATORVASTATIN CALCIUM [Suspect]
     Dosage: UNK
     Route: 048
  3. COUMADINE [Interacting]
     Indication: CARDIAC VALVE DISEASE
     Dosage: UNK
     Route: 048
     Dates: end: 20121010
  4. LEVOTHYROX [Suspect]
     Dosage: UNK
     Route: 048
  5. FUROSEMIDE [Concomitant]
     Dosage: UNK
  6. CARDENSIEL [Concomitant]
     Dosage: UNK
  7. AMLODIPINE [Concomitant]
     Dosage: UNK
  8. NOVOMIX [Concomitant]
     Dosage: UNK
  9. LEVOCETIRIZINE [Concomitant]
     Dosage: UNK
  10. MACROGOL [Concomitant]
     Dosage: UNK
  11. LYRICA [Concomitant]
     Dosage: UNK
  12. IXPRIM [Concomitant]
     Dosage: UNK
  13. LANSOPRAZOLE [Concomitant]
     Dosage: UNK

REACTIONS (4)
  - Drug interaction [Recovered/Resolved]
  - International normalised ratio increased [Recovered/Resolved]
  - Normochromic normocytic anaemia [Not Recovered/Not Resolved]
  - Gastric ulcer haemorrhage [Unknown]
